FAERS Safety Report 4346846-X (Version None)
Quarter: 2004Q1

REPORT INFORMATION
  Report Type: 
  Country: None (occurrence: None)
  Receive Date: 20040329
  Receipt Date: 20040218
  Transmission Date: 20041129
  Serious: No
  Sender: FDA-Public Use
  Company Number: USA031254422

PATIENT
  Age: 8 Year
  Sex: Male
  Weight: 25 kg

DRUGS (4)
  1. STRATTERA [Suspect]
     Indication: ATTENTION DEFICIT/HYPERACTIVITY DISORDER
     Dosage: 10 MG/3 DAY
     Dates: start: 20030401
  2. SINGULAIR [Concomitant]
  3. ZYRTEC [Concomitant]
  4. ADDERALL 10 [Concomitant]

REACTIONS (6)
  - DECREASED APPETITE [None]
  - ERUCTATION [None]
  - FLATULENCE [None]
  - MUSCLE CRAMP [None]
  - NERVOUSNESS [None]
  - VOMITING [None]
